FAERS Safety Report 14468188 (Version 2)
Quarter: 2018Q1

REPORT INFORMATION
  Report Type: Spontaneous
  Country: PL (occurrence: PL)
  Receive Date: 20180131
  Receipt Date: 20180208
  Transmission Date: 20180509
  Serious: Yes (Hospitalization)
  Sender: FDA-Public Use
  Company Number: PL-ASTELLAS-2018US005398

PATIENT
  Age: 28 Year
  Sex: Male

DRUGS (11)
  1. MAGNESIUM [Concomitant]
     Active Substance: MAGNESIUM
     Indication: PRODUCT USED FOR UNKNOWN INDICATION
     Dosage: UNK, UNKNOWN FREQ.
     Route: 065
  2. OMEPRAZOLE. [Concomitant]
     Active Substance: OMEPRAZOLE
     Indication: PRODUCT USED FOR UNKNOWN INDICATION
     Dosage: UNK, UNKNOWN FREQ.
     Route: 065
  3. PREDNISONE. [Concomitant]
     Active Substance: PREDNISONE
     Indication: LIVER TRANSPLANT
     Route: 065
  4. TRIMETHOPRIM SULFAMETHOXAZOLE [Concomitant]
     Active Substance: SULFAMETHOXAZOLE\TRIMETHOPRIM
     Indication: ANTIBIOTIC THERAPY
     Dosage: UNK, UNKNOWN FREQ.
     Route: 065
  5. FUROSEMIDE. [Concomitant]
     Active Substance: FUROSEMIDE
     Indication: PRODUCT USED FOR UNKNOWN INDICATION
     Dosage: UNK, UNKNOWN FREQ.
     Route: 065
  6. ACICLOVIR SODIUM [Concomitant]
     Indication: ANTIBIOTIC THERAPY
     Dosage: UNK, UNKNOWN FREQ.
     Route: 065
  7. NADROPARIN CALCIUM [Concomitant]
     Active Substance: NADROPARIN CALCIUM
     Indication: ANTICOAGULANT THERAPY
     Route: 065
  8. TACROLIMUS. [Suspect]
     Active Substance: TACROLIMUS
     Indication: LIVER TRANSPLANT
     Dosage: 6 MG, UNKNOWN FREQ. (IN TWO DIVIDED DOSES)
     Route: 065
  9. FLUCONAZOLE. [Interacting]
     Active Substance: FLUCONAZOLE
     Indication: ANTIBIOTIC THERAPY
     Dosage: UNK UNK, UNKNOWN FREQ.
     Route: 065
  10. TACROLIMUS. [Interacting]
     Active Substance: TACROLIMUS
     Dosage: UNK, UNKNOWN FREQ.
     Route: 065
  11. CALCIUM [Concomitant]
     Active Substance: CALCIUM
     Indication: PRODUCT USED FOR UNKNOWN INDICATION
     Dosage: UNK, UNKNOWN FREQ.
     Route: 065

REACTIONS (6)
  - Pulmonary vascular disorder [Unknown]
  - Oxygen saturation decreased [Recovering/Resolving]
  - Hyponatraemia [Recovered/Resolved]
  - Chest pain [Recovered/Resolved]
  - Drug interaction [Recovered/Resolved]
  - Drug level increased [Recovered/Resolved]
